FAERS Safety Report 6505797-2 (Version None)
Quarter: 2009Q4

REPORT INFORMATION
  Report Type: 
  Country: None (occurrence: None)
  Receive Date: 20091217
  Receipt Date: 20091217
  Transmission Date: 20100525
  Serious: No
  Sender: FDA-Public Use
  Company Number: None

PATIENT
  Sex: Male
  Weight: 66.2 kg

DRUGS (5)
  1. CYCLOPHOSPHAMIDE [Suspect]
     Dosage: 1610 MG
     Dates: end: 20090420
  2. CYTARABINE [Concomitant]
     Dosage: 121 MG
     Dates: end: 20090430
  3. MERCAPTOPURINE [Suspect]
     Dosage: 100 MG
     Dates: end: 20090503
  4. ONCASPAR [Suspect]
     Dosage: 4050 MG
     Dates: end: 20090504
  5. VINCRISTINE SULFATE [Suspect]
     Dosage: 2 MG
     Dates: end: 20090511

REACTIONS (1)
  - BLOOD GLUCOSE INCREASED [None]
